FAERS Safety Report 7138438-4 (Version None)
Quarter: 2010Q4

REPORT INFORMATION
  Report Type: 
  Country: None (occurrence: None)
  Receive Date: 20101206
  Receipt Date: 20101122
  Transmission Date: 20110411
  Serious: Yes (Hospitalization)
  Sender: FDA-Public Use
  Company Number: PHHY2010JP80534

PATIENT
  Sex: Male

DRUGS (6)
  1. AFINITOR [Suspect]
     Indication: METASTATIC RENAL CELL CARCINOMA
     Dosage: 10 MG, UNK
     Route: 048
     Dates: start: 20100714, end: 20100728
  2. AFINITOR [Suspect]
     Dosage: 10 MG, UNK
     Route: 048
     Dates: start: 20100804, end: 20100824
  3. AFINITOR [Suspect]
     Dosage: 5 MG, UNK
     Route: 048
     Dates: start: 20100831, end: 20101104
  4. NEUFAN [Concomitant]
     Dosage: 100 MG, UNK
     Route: 048
     Dates: start: 20100714
  5. KREMEZIN [Concomitant]
     Dosage: 2 DF, UNK
     Route: 048
     Dates: start: 20100714
  6. MOHRUS TAPE [Concomitant]
     Dosage: UNK
     Route: 062
     Dates: start: 20100714

REACTIONS (1)
  - CEREBRAL HAEMORRHAGE [None]
